FAERS Safety Report 23679874 (Version 1)
Quarter: 2024Q1

REPORT INFORMATION
  Report Type: Report from Study
  Country: CA (occurrence: CA)
  Receive Date: 20240327
  Receipt Date: 20240327
  Transmission Date: 20240409
  Serious: Yes (Hospitalization, Other)
  Sender: FDA-Public Use
  Company Number: CA-BAUSCH-BL-2024-004664

PATIENT
  Sex: Female

DRUGS (7)
  1. CONTRAVE [Suspect]
     Active Substance: BUPROPION HYDROCHLORIDE\NALTREXONE HYDROCHLORIDE
     Indication: Weight control
     Dosage: 90/8 MG, 1 TAB/DAY
     Route: 048
     Dates: start: 20240213, end: 20240312
  2. CONTRAVE [Suspect]
     Active Substance: BUPROPION HYDROCHLORIDE\NALTREXONE HYDROCHLORIDE
     Dosage: 90/8 MG, 2 TABLETS/DAY
     Route: 048
     Dates: start: 20240313, end: 20240316
  3. AMITRIPTYLINE [Concomitant]
     Active Substance: AMITRIPTYLINE
     Indication: Cluster headache
     Dosage: STARTED PRE-CONTRAVE (1 IN 1 D)
     Route: 048
     Dates: end: 202403
  4. PREDNISONE [Concomitant]
     Active Substance: PREDNISONE
     Indication: Colitis microscopic
     Dosage: STARTED PRE-CONTRAVE (1 IN 1 D)
     Route: 048
     Dates: end: 202403
  5. PREDNISONE [Concomitant]
     Active Substance: PREDNISONE
     Dosage: 1 DOSAGE FORMS (1 IN 1 D)
     Route: 048
     Dates: start: 202403
  6. PROPRANOLOL [Concomitant]
     Active Substance: PROPRANOLOL HYDROCHLORIDE
     Indication: Hypertension
     Dosage: STARTED PRE-CONTRAVE (1 IN 1 D)
     Route: 048
  7. PERINDOPRIL [Concomitant]
     Active Substance: PERINDOPRIL
     Indication: Hypertension
     Dosage: STARTED PRE-CONTRAVE (1 IN 1 D)
     Route: 048

REACTIONS (4)
  - Costochondritis [Not Recovered/Not Resolved]
  - Pancreatitis [Not Recovered/Not Resolved]
  - Headache [Not Recovered/Not Resolved]
  - Labelled drug-disease interaction issue [Unknown]

NARRATIVE: CASE EVENT DATE: 20240101
